FAERS Safety Report 20541874 (Version 1)
Quarter: 2022Q1

REPORT INFORMATION
  Report Type: Spontaneous
  Country: CA (occurrence: CA)
  Receive Date: 20220302
  Receipt Date: 20220302
  Transmission Date: 20220424
  Serious: Yes (Other)
  Sender: FDA-Public Use
  Company Number: CA-JNJFOC-20211218866

PATIENT
  Age: 56 Year
  Sex: Female

DRUGS (2)
  1. INVOKANA [Suspect]
     Active Substance: CANAGLIFLOZIN
     Indication: Diabetes mellitus
     Dosage: THERAPY END DATE -MID OCTOBER
     Route: 048
     Dates: start: 202109, end: 202110
  2. METFORMIN [Suspect]
     Active Substance: METFORMIN HYDROCHLORIDE
     Indication: Diabetes mellitus
     Dosage: TAKEN TOGETHER WITH FOOD BETWEEN 5-6AM
     Route: 065

REACTIONS (2)
  - Haematochezia [Unknown]
  - Dyspepsia [Unknown]
